FAERS Safety Report 8732332 (Version 2)
Quarter: 2012Q4

REPORT INFORMATION
  Report Type: 
  Country: US (occurrence: US)
  Receive Date: 20120820
  Receipt Date: 20121011
  Transmission Date: 20130627
  Serious: Yes (Death)
  Sender: FDA-Public Use
  Company Number: US-GLAXOSMITHKLINE-A0990051A

PATIENT
  Sex: Male
  Weight: 64.1 kg

DRUGS (2)
  1. TYKERB [Suspect]
     Indication: OESOPHAGEAL CARCINOMA
     Dosage: 250MG Per day
     Route: 065
  2. CAPECITABINE [Suspect]
     Indication: PRODUCT USED FOR UNKNOWN INDICATION

REACTIONS (1)
  - Malignant neoplasm progression [Fatal]
